FAERS Safety Report 6955686-4 (Version None)
Quarter: 2010Q3

REPORT INFORMATION
  Report Type: 
  Country: None (occurrence: None)
  Receive Date: 20100830
  Receipt Date: 20100817
  Transmission Date: 20110219
  Serious: Yes (Hospitalization, Other)
  Sender: FDA-Public Use
  Company Number: JP-WATSON-2010-10141

PATIENT
  Age: 75 Year
  Sex: Female

DRUGS (1)
  1. PRAVASTATIN SODIUM [Suspect]
     Indication: HYPERCHOLESTEROLAEMIA
     Dosage: UNK
     Dates: start: 20000101

REACTIONS (3)
  - AUTOIMMUNE HEPATITIS [None]
  - HEPATIC CIRRHOSIS [None]
  - LIVER FUNCTION TEST ABNORMAL [None]
